FAERS Safety Report 12240020 (Version 1)
Quarter: 2016Q2

REPORT INFORMATION
  Report Type: Spontaneous
  Country: US (occurrence: US)
  Receive Date: 20160405
  Receipt Date: 20160405
  Transmission Date: 20160815
  Serious: No
  Sender: FDA-Public Use
  Company Number: US-ROCHE-1697124

PATIENT
  Age: 54 Year
  Sex: Female

DRUGS (10)
  1. PREDNISONE. [Concomitant]
     Active Substance: PREDNISONE
  2. VITAMIN B12 [Concomitant]
     Active Substance: CYANOCOBALAMIN
  3. PERCOCET [Concomitant]
     Active Substance: ACETAMINOPHEN\OXYCODONE HYDROCHLORIDE
     Dosage: 10/325 MG
     Route: 065
  4. POTASSIUM CHLORIDE ERT [Concomitant]
  5. LORAZEPAM. [Concomitant]
     Active Substance: LORAZEPAM
  6. RANITIDINE. [Concomitant]
     Active Substance: RANITIDINE
  7. ERIVEDGE [Suspect]
     Active Substance: VISMODEGIB
     Indication: BASAL CELL CARCINOMA
     Route: 048
     Dates: start: 20151231
  8. DIGOXIN. [Concomitant]
     Active Substance: DIGOXIN
     Route: 065
  9. METOPROLOL. [Concomitant]
     Active Substance: METOPROLOL
  10. FLONASE (UNITED STATES) [Concomitant]

REACTIONS (4)
  - Headache [Unknown]
  - Hot flush [Unknown]
  - Nausea [Unknown]
  - Decreased appetite [Unknown]

NARRATIVE: CASE EVENT DATE: 20160111
